FAERS Safety Report 12279852 (Version 1)
Quarter: 2016Q2

REPORT INFORMATION
  Report Type: Spontaneous
  Country: AR (occurrence: AR)
  Receive Date: 20160418
  Receipt Date: 20160418
  Transmission Date: 20160815
  Serious: Yes (Hospitalization, Other)
  Sender: FDA-Public Use
  Company Number: AR-ABBVIE-16K-007-1590851-00

PATIENT
  Age: 68 Year
  Sex: Female

DRUGS (4)
  1. SULFASALAZINE. [Concomitant]
     Active Substance: SULFASALAZINE
     Indication: PRODUCT USED FOR UNKNOWN INDICATION
  2. HUMIRA [Suspect]
     Active Substance: ADALIMUMAB
     Indication: RHEUMATOID ARTHRITIS
     Route: 058
     Dates: start: 201406, end: 201602
  3. PREDNISONE. [Concomitant]
     Active Substance: PREDNISONE
     Indication: PRODUCT USED FOR UNKNOWN INDICATION
  4. DICLOFENAC [Concomitant]
     Active Substance: DICLOFENAC
     Indication: PRODUCT USED FOR UNKNOWN INDICATION

REACTIONS (9)
  - Sinusitis [Unknown]
  - C-reactive protein abnormal [Unknown]
  - Fungal endocarditis [Unknown]
  - Headache [Unknown]
  - Purpura [Unknown]
  - Chills [Unknown]
  - Endodontic procedure [Unknown]
  - Red blood cell sedimentation rate abnormal [Unknown]
  - Bronchospasm [Unknown]

NARRATIVE: CASE EVENT DATE: 201602
